FAERS Safety Report 17974379 (Version 7)
Quarter: 2021Q2

REPORT INFORMATION
  Report Type: Spontaneous
  Country: US (occurrence: US)
  Receive Date: 20200702
  Receipt Date: 20210406
  Transmission Date: 20210717
  Serious: Yes (Other)
  Sender: FDA-Public Use
  Company Number: US-ROCHE-2634296

PATIENT
  Age: 28 Year
  Sex: Male

DRUGS (14)
  1. OXYCODONE [Concomitant]
     Active Substance: OXYCODONE
  2. ANTIBIOTICS (UNK INGREDIENTS) [Concomitant]
  3. GABAPENTIN. [Concomitant]
     Active Substance: GABAPENTIN
  4. TESTOSTERONE. [Concomitant]
     Active Substance: TESTOSTERONE
  5. PANTOPRAZOLE [Concomitant]
     Active Substance: PANTOPRAZOLE
  6. TIZANIDINE HYDROCHLORIDE. [Concomitant]
     Active Substance: TIZANIDINE HYDROCHLORIDE
  7. HYDROCODONE [Concomitant]
     Active Substance: HYDROCODONE
  8. ACETAMINOPHEN. [Concomitant]
     Active Substance: ACETAMINOPHEN
  9. ATORVASTATIN [Concomitant]
     Active Substance: ATORVASTATIN
  10. ERIVEDGE [Suspect]
     Active Substance: VISMODEGIB
     Indication: CONGENITAL ANOMALY
     Dosage: 3 TIMES WEEKLY?START DATE: 13/APR/2017
     Route: 048
  11. PROTONIX (PHILIPPINES) [Concomitant]
  12. ERIVEDGE [Suspect]
     Active Substance: VISMODEGIB
     Dosage: 3 TIMES WEEKLY?START DATE:19/AUG/2018
     Route: 048
  13. VITAMIN D [Concomitant]
     Active Substance: VITAMIN D NOS
  14. LEVOTHYROXINE SODIUM. [Concomitant]
     Active Substance: LEVOTHYROXINE SODIUM

REACTIONS (21)
  - Off label use [Unknown]
  - Dysgeusia [Unknown]
  - Weight decreased [Recovered/Resolved]
  - Decreased appetite [Not Recovered/Not Resolved]
  - Illness [Unknown]
  - Melanocytic naevus [Unknown]
  - Muscle spasms [Not Recovered/Not Resolved]
  - Ageusia [Not Recovered/Not Resolved]
  - Kidney infection [Unknown]
  - Barrett^s oesophagus [Unknown]
  - Diarrhoea [Recovered/Resolved]
  - Alopecia [Recovered/Resolved]
  - Vomiting [Unknown]
  - Fatigue [Not Recovered/Not Resolved]
  - Drug intolerance [Recovered/Resolved]
  - Pain in extremity [Not Recovered/Not Resolved]
  - Agitation [Not Recovered/Not Resolved]
  - Arthralgia [Not Recovered/Not Resolved]
  - Product use in unapproved indication [Unknown]
  - Asthenia [Not Recovered/Not Resolved]
  - Nausea [Recovered/Resolved]

NARRATIVE: CASE EVENT DATE: 20130820
